FAERS Safety Report 7474096-7 (Version None)
Quarter: 2011Q2

REPORT INFORMATION
  Report Type: 
  Country: None (occurrence: None)
  Receive Date: 20110511
  Receipt Date: 20110505
  Transmission Date: 20111010
  Serious: Yes (Hospitalization, Other)
  Sender: FDA-Public Use
  Company Number: FR-PFIZER INC-2011080777

PATIENT
  Age: 70 Year
  Sex: Male

DRUGS (5)
  1. RIVOTRIL [Concomitant]
  2. LYRICA [Suspect]
     Indication: FACIAL PAIN
     Dosage: 75 MG IN MORNING, 150 MG IN EVENING
     Route: 048
     Dates: end: 20100930
  3. AMITRIPTYLINE HCL [Concomitant]
     Indication: NEURALGIA
     Dosage: 2 DROPS DAILY IN EVENING
     Route: 048
     Dates: end: 20100930
  4. LYRICA [Suspect]
     Indication: NEURALGIA
  5. DURAGESIC-100 [Concomitant]
     Indication: PAIN
     Dosage: 40 MCG DEVICE EVERY 3 DAYS
     Route: 062

REACTIONS (7)
  - DEPERSONALISATION [None]
  - FALL [None]
  - GLOSSODYNIA [None]
  - CONFUSIONAL STATE [None]
  - RASH ERYTHEMATOUS [None]
  - ESCHAR [None]
  - NEURALGIA [None]
